FAERS Safety Report 22973336 (Version 2)
Quarter: 2023Q4

REPORT INFORMATION
  Report Type: Spontaneous
  Country: IT (occurrence: IT)
  Receive Date: 20230922
  Receipt Date: 20231009
  Transmission Date: 20240109
  Serious: Yes (Other)
  Sender: FDA-Public Use
  Company Number: IT-TEVA-2023-IT-2928514

PATIENT
  Age: 60 Year
  Sex: Female

DRUGS (8)
  1. VINCRISTINE [Suspect]
     Active Substance: VINCRISTINE
     Indication: Primary cardiac lymphoma
     Dosage: COMPLETED A1, B1, A2, B2, AND A3 CYCLES
     Route: 065
     Dates: start: 201905, end: 201909
  2. VINCRISTINE [Suspect]
     Active Substance: VINCRISTINE
     Dosage: B3
     Route: 065
     Dates: start: 201910
  3. METHOTREXATE [Suspect]
     Active Substance: METHOTREXATE
     Indication: Primary cardiac lymphoma
     Dosage: A1, B1, A2, B2, AND A3 CYCLES
     Route: 065
     Dates: start: 201905, end: 201909
  4. METHOTREXATE [Suspect]
     Active Substance: METHOTREXATE
     Dosage: B3
     Route: 065
     Dates: start: 201910
  5. DOXORUBICIN [Suspect]
     Active Substance: DOXORUBICIN
     Indication: Primary cardiac lymphoma
     Dosage: A1, B1, A2, B2, AND A3 CYCLES
     Route: 065
     Dates: start: 201905, end: 201909
  6. DOXORUBICIN [Suspect]
     Active Substance: DOXORUBICIN
     Dosage: B3
     Route: 065
     Dates: start: 201910
  7. CYCLOPHOSPHAMIDE [Suspect]
     Active Substance: CYCLOPHOSPHAMIDE
     Indication: Primary cardiac lymphoma
     Dosage: A1, B1, A2, B2, AND A3 CYCLES
     Route: 065
     Dates: start: 201905, end: 201909
  8. CYCLOPHOSPHAMIDE [Suspect]
     Active Substance: CYCLOPHOSPHAMIDE
     Dosage: B3
     Route: 065
     Dates: start: 201910

REACTIONS (3)
  - Thrombocytopenia [Unknown]
  - Neutropenia [Unknown]
  - Anaemia [Unknown]

NARRATIVE: CASE EVENT DATE: 20191001
